FAERS Safety Report 8547938-1 (Version None)
Quarter: 2012Q3

REPORT INFORMATION
  Report Type: 
  Country: None (occurrence: None)
  Receive Date: 20120728
  Receipt Date: 20101021
  Transmission Date: 20120928
  Serious: Yes (Hospitalization)
  Sender: FDA-Public Use
  Company Number: US-BAYER-201039126NA

PATIENT
  Age: 29 Year
  Sex: Female
  Weight: 80 kg

DRUGS (5)
  1. IBUPROFEN [Concomitant]
     Indication: PAIN
     Route: 065
  2. YAZ [Suspect]
     Indication: MENSTRUAL CYCLE MANAGEMENT
     Route: 048
     Dates: start: 20060801, end: 20091101
  3. YAZ [Suspect]
     Indication: ORAL CONTRACEPTION
  4. MIRALAX [Concomitant]
     Indication: PAIN
     Route: 065
  5. ACETAMINOPHEN [Concomitant]
     Indication: PAIN
     Route: 065

REACTIONS (4)
  - PULMONARY EMBOLISM [None]
  - PAINFUL RESPIRATION [None]
  - DYSPNOEA [None]
  - CHEST PAIN [None]
